FAERS Safety Report 4269933-3 (Version None)
Quarter: 2004Q1

REPORT INFORMATION
  Report Type: 
  Country: None (occurrence: None)
  Receive Date: 20040114
  Receipt Date: 20040104
  Transmission Date: 20041129
  Serious: Yes (Life-Threatening, Hospitalization)
  Sender: FDA-Public Use
  Company Number: PHEH2004US00484

PATIENT
  Age: 85 Year
  Sex: Male

DRUGS (1)
  1. ZOMETA [Suspect]
     Indication: PROSTATE CANCER METASTATIC
     Dosage: 4 MG EVERY MONTH
     Route: 042
     Dates: start: 20031201

REACTIONS (3)
  - BLOOD CALCIUM DECREASED [None]
  - ELECTROCARDIOGRAM ABNORMAL [None]
  - PROSTATE CANCER [None]
